FAERS Safety Report 5894723-5 (Version None)
Quarter: 2008Q3

REPORT INFORMATION
  Report Type: 
  Country: None (occurrence: None)
  Receive Date: 20080924
  Receipt Date: 20080523
  Transmission Date: 20090109
  Serious: No
  Sender: FDA-Public Use
  Company Number: US-ASTRAZENECA-2008UW10607

PATIENT
  Age: 25 Year
  Sex: Female
  Weight: 62.6 kg

DRUGS (3)
  1. SEROQUEL [Suspect]
     Indication: SLEEP DISORDER
     Route: 048
     Dates: start: 20040101
  2. DEPAKOTE [Concomitant]
  3. WELLBUTRIN [Concomitant]

REACTIONS (2)
  - DYSPHAGIA [None]
  - THROAT TIGHTNESS [None]
